FAERS Safety Report 12995445 (Version 1)
Quarter: 2016Q4

REPORT INFORMATION
  Report Type: Spontaneous
  Country: US (occurrence: US)
  Receive Date: 20161202
  Receipt Date: 20161202
  Transmission Date: 20170207
  Serious: No
  Sender: FDA-Public Use
  Company Number: US-PERRIGO-16US001766

PATIENT
  Sex: Male

DRUGS (1)
  1. CIMETIDINE [Suspect]
     Active Substance: CIMETIDINE
     Indication: GASTROOESOPHAGEAL REFLUX DISEASE
     Dosage: 200 MG, SINGLE
     Route: 048
     Dates: start: 20160217, end: 20160217

REACTIONS (1)
  - Drug ineffective [Unknown]

NARRATIVE: CASE EVENT DATE: 20160217
